FAERS Safety Report 14710579 (Version 1)
Quarter: 2018Q2

REPORT INFORMATION
  Report Type: Spontaneous
  Country: US (occurrence: US)
  Receive Date: 20180403
  Receipt Date: 20180403
  Transmission Date: 20180711
  Serious: No
  Sender: FDA-Public Use
  Company Number: US-ROCHE-2020616

PATIENT
  Sex: Female

DRUGS (14)
  1. ZOLPIDEM [Concomitant]
     Active Substance: ZOLPIDEM\ZOLPIDEM TARTRATE
  2. ERIVEDGE [Suspect]
     Active Substance: VISMODEGIB
     Indication: SKIN CANCER
     Route: 048
     Dates: start: 20160719
  3. METOPROLOL TARTRATE. [Concomitant]
     Active Substance: METOPROLOL TARTRATE
  4. MIRALAX [Concomitant]
     Active Substance: POLYETHYLENE GLYCOL 3350
  5. EXCEDRIN MIGRAINE [Concomitant]
     Active Substance: ACETAMINOPHEN\ASPIRIN\CAFFEINE
  6. SPIRIVA [Concomitant]
     Active Substance: TIOTROPIUM BROMIDE MONOHYDRATE
  7. AMIODARONE [Concomitant]
     Active Substance: AMIODARONE
  8. DEXAMETHASONE. [Concomitant]
     Active Substance: DEXAMETHASONE
  9. ONDANSETRON [Concomitant]
     Active Substance: ONDANSETRON
  10. PROVENTIL [Concomitant]
     Active Substance: ALBUTEROL
  11. DIAZEPAM. [Concomitant]
     Active Substance: DIAZEPAM
     Route: 065
  12. FOLIC ACID. [Concomitant]
     Active Substance: FOLIC ACID
  13. SIMVASTATIN. [Concomitant]
     Active Substance: SIMVASTATIN
  14. LOPERAMIDE [Concomitant]
     Active Substance: LOPERAMIDE

REACTIONS (3)
  - Speech disorder [Unknown]
  - Ill-defined disorder [Unknown]
  - Fall [Unknown]
